FAERS Safety Report 14393255 (Version 2)
Quarter: 2018Q3

REPORT INFORMATION
  Report Type: Spontaneous
  Country: LB (occurrence: LB)
  Receive Date: 20180116
  Receipt Date: 20180709
  Transmission Date: 20181010
  Serious: Yes (Hospitalization, Other)
  Sender: FDA-Public Use
  Company Number: LB-BAYER-2017-222188

PATIENT
  Age: 30 Year
  Sex: Female

DRUGS (1)
  1. NEXAVAR [Suspect]
     Active Substance: SORAFENIB
     Indication: HEPATOCELLULAR CARCINOMA
     Dosage: 400 MG, BID
     Route: 048
     Dates: start: 20171019

REACTIONS (7)
  - Hepatocellular carcinoma [None]
  - Rash erythematous [Unknown]
  - Skin lesion [Unknown]
  - Rash [None]
  - Diarrhoea [Unknown]
  - Stevens-Johnson syndrome [Unknown]
  - Pyrexia [Unknown]

NARRATIVE: CASE EVENT DATE: 201710
